FAERS Safety Report 22160324 (Version 1)
Quarter: 2023Q1

REPORT INFORMATION
  Report Type: Spontaneous
  Country: US (occurrence: None)
  Receive Date: 20230330
  Receipt Date: 20230330
  Transmission Date: 20230417
  Serious: Yes (Other)
  Sender: FDA-Public Use
  Company Number: None

PATIENT
  Age: 59 Year
  Sex: Female
  Weight: 65.25 kg

DRUGS (1)
  1. BUPROPION [Suspect]
     Active Substance: BUPROPION
     Indication: Schizoaffective disorder
     Route: 048

REACTIONS (4)
  - Depression [None]
  - Lethargy [None]
  - Apathy [None]
  - Product substitution issue [None]

NARRATIVE: CASE EVENT DATE: 20230330
